FAERS Safety Report 4948164-5 (Version None)
Quarter: 2006Q1

REPORT INFORMATION
  Report Type: 
  Country: None (occurrence: None)
  Receive Date: 20060313
  Receipt Date: 20060308
  Transmission Date: 20060701
  Serious: Yes (Other)
  Sender: FDA-Public Use
  Company Number: S06-USA-01048-01

PATIENT
  Sex: 0

DRUGS (1)
  1. LEXAPRO [Suspect]
     Dosage: 5 MG QD PO
     Route: 048

REACTIONS (1)
  - NEUROPATHY PERIPHERAL [None]
